FAERS Safety Report 4731887-0 (Version None)
Quarter: 2005Q3

REPORT INFORMATION
  Report Type: 
  Country: None (occurrence: None)
  Receive Date: 20050725
  Receipt Date: 20041116
  Transmission Date: 20060218
  Serious: Yes (Disabling)
  Sender: FDA-Public Use
  Company Number: WAES 0411USA02791

PATIENT
  Age: 71 Year
  Sex: Female

DRUGS (4)
  1. VIOXX [Suspect]
     Indication: ARTHRITIS
     Dosage: 25 MG/DAILY/PO
     Route: 048
     Dates: start: 20010101, end: 20040901
  2. NORVASC [Concomitant]
     Indication: ARTHRITIS
     Dosage: 25 MG/DAILY/PO
     Route: 048
     Dates: start: 20010101, end: 20040901
  3. NORVASC [Concomitant]
  4. PLAVIX [Concomitant]

REACTIONS (2)
  - FLUID RETENTION [None]
  - OEDEMA PERIPHERAL [None]
